FAERS Safety Report 6574580-4 (Version None)
Quarter: 2010Q1

REPORT INFORMATION
  Report Type: 
  Country: None (occurrence: None)
  Receive Date: 20100209
  Receipt Date: 20100204
  Transmission Date: 20100710
  Serious: Yes (Other)
  Sender: FDA-Public Use
  Company Number: US-ASTRAZENECA-2009SE15675

PATIENT
  Age: 47 Year
  Sex: Male
  Weight: 70.8 kg

DRUGS (5)
  1. SEROQUEL [Suspect]
     Indication: SLEEP DISORDER
     Dosage: 600 MG AT PM
     Route: 048
     Dates: start: 20030101
  2. SEROQUEL [Suspect]
     Indication: BIPOLAR DISORDER
     Dosage: 600 MG AT PM
     Route: 048
     Dates: start: 20030101
  3. NARDIL [Concomitant]
     Indication: DEPRESSION
  4. LAMICATED [Concomitant]
     Dates: start: 20060101
  5. NEVROTIN [Concomitant]
     Dates: start: 20000101

REACTIONS (6)
  - BLOOD CHOLESTEROL INCREASED [None]
  - BLOOD TRIGLYCERIDES INCREASED [None]
  - DIABETIC COMPLICATION [None]
  - HERNIA [None]
  - HYPERLIPIDAEMIA [None]
  - TYPE 2 DIABETES MELLITUS [None]
